FAERS Safety Report 11903045 (Version 1)
Quarter: 2016Q1

REPORT INFORMATION
  Report Type: Report from Study
  Country: US (occurrence: US)
  Receive Date: 20160108
  Receipt Date: 20160108
  Transmission Date: 20160526
  Serious: No
  Sender: FDA-Public Use
  Company Number: US-ABBVIE-15P-163-1517479-00

PATIENT
  Age: 49 Year
  Sex: Male

DRUGS (2)
  1. RIBAVIRIN. [Suspect]
     Active Substance: RIBAVIRIN
     Indication: CHRONIC HEPATITIS C
     Route: 048
     Dates: start: 20150121, end: 20150421
  2. VIEKIRA PAK [Suspect]
     Active Substance: DASABUVIR\OMBITASVIR\PARITAPREVIR\RITONAVIR
     Indication: CHRONIC HEPATITIS C
     Route: 048
     Dates: start: 20150121, end: 20150421

REACTIONS (9)
  - Feeling cold [Unknown]
  - Rhinorrhoea [Unknown]
  - Stomatitis [Unknown]
  - Night sweats [Unknown]
  - Skin abrasion [Unknown]
  - Pain in extremity [Unknown]
  - Nasal congestion [Unknown]
  - Cough [Unknown]
  - Chest discomfort [Unknown]
